FAERS Safety Report 4900190-8 (Version None)
Quarter: 2006Q1

REPORT INFORMATION
  Report Type: 
  Country: None (occurrence: None)
  Receive Date: 20060203
  Receipt Date: 20050630
  Transmission Date: 20060701
  Serious: Yes (Life-Threatening, Hospitalization, Other)
  Sender: FDA-Public Use
  Company Number: A01200505198

PATIENT
  Age: 77 Year
  Sex: Female
  Weight: 90.9 kg

DRUGS (2)
  1. ARIXTRA [Suspect]
     Indication: DEEP VEIN THROMBOSIS
     Dosage: 10MG PER DAY
     Route: 058
     Dates: start: 20050503, end: 20050509
  2. COUMADIN [Concomitant]
     Route: 048
     Dates: end: 20050509

REACTIONS (1)
  - GASTROINTESTINAL HAEMORRHAGE [None]
